FAERS Safety Report 12262205 (Version 8)
Quarter: 2017Q1

REPORT INFORMATION
  Report Type: Report from Study
  Country: BR (occurrence: BR)
  Receive Date: 20160413
  Receipt Date: 20170321
  Transmission Date: 20170428
  Serious: Yes (Hospitalization, Other)
  Sender: FDA-Public Use
  Company Number: BR-GLAXOSMITHKLINE-BR2016GSK048722

PATIENT
  Age: 46 Year
  Sex: Female
  Weight: 53 kg

DRUGS (2)
  1. BELIMUMAB [Suspect]
     Active Substance: BELIMUMAB
     Indication: SYSTEMIC LUPUS ERYTHEMATOSUS
     Dosage: UNK
     Dates: start: 20160401
  2. RIVOTRIL [Concomitant]
     Active Substance: CLONAZEPAM
     Indication: PRODUCT USED FOR UNKNOWN INDICATION
     Dosage: UNK

REACTIONS (25)
  - Nervous system disorder [Unknown]
  - Pain [Unknown]
  - Cyst [Unknown]
  - Drug dose omission [Not Recovered/Not Resolved]
  - Diarrhoea [Not Recovered/Not Resolved]
  - Feeling abnormal [Unknown]
  - Malaise [Not Recovered/Not Resolved]
  - Feeling of body temperature change [Not Recovered/Not Resolved]
  - Vomiting [Unknown]
  - Limb discomfort [Unknown]
  - Product availability issue [Unknown]
  - Medication error [Unknown]
  - Swelling [Unknown]
  - Abdominal distension [Unknown]
  - Hyperhidrosis [Not Recovered/Not Resolved]
  - Bursitis [Unknown]
  - Drug dose omission [Unknown]
  - Syncope [Unknown]
  - Nephrolithiasis [Unknown]
  - Pain in extremity [Unknown]
  - Tendonitis [Unknown]
  - Sjogren^s syndrome [Unknown]
  - Headache [Unknown]
  - Asthenia [Not Recovered/Not Resolved]
  - Dry eye [Unknown]

NARRATIVE: CASE EVENT DATE: 201610
